FAERS Safety Report 7725183-7 (Version None)
Quarter: 2011Q3

REPORT INFORMATION
  Report Type: 
  Country: None (occurrence: None)
  Receive Date: 20110901
  Receipt Date: 20110824
  Transmission Date: 20111222
  Serious: Yes (Other)
  Sender: FDA-Public Use
  Company Number: US-AMGEN-USASP2011043424

PATIENT
  Age: 57 Year
  Sex: Male

DRUGS (8)
  1. XGEVA [Suspect]
     Indication: METASTASES TO BONE
     Dosage: 120 MG, Q4WK
     Dates: start: 20110524, end: 20110824
  2. OXYCODONE HCL [Concomitant]
  3. SUTENT [Concomitant]
  4. METHADONE HCL [Concomitant]
  5. ONDANSETRON [Concomitant]
  6. SENOKOT [Concomitant]
  7. DEXAMETHASONE [Concomitant]
  8. RANITIDINE [Concomitant]

REACTIONS (1)
  - HYPERPLASIA [None]
